FAERS Safety Report 23115539 (Version 1)
Quarter: 2023Q4

REPORT INFORMATION
  Report Type: Spontaneous
  Country: US (occurrence: US)
  Receive Date: 20231027
  Receipt Date: 20231027
  Transmission Date: 20240110
  Serious: No
  Sender: FDA-Public Use
  Company Number: US-ABBVIE-5457922

PATIENT
  Sex: Female

DRUGS (1)
  1. SULFACETAMIDE [Suspect]
     Active Substance: SULFACETAMIDE
     Indication: Product used for unknown indication
     Route: 065

REACTIONS (3)
  - Psoriasis [Unknown]
  - Drug ineffective [Unknown]
  - Alopecia [Unknown]
